FAERS Safety Report 20805119 (Version 1)
Quarter: 2022Q2

REPORT INFORMATION
  Report Type: Spontaneous
  Country: US (occurrence: US)
  Receive Date: 20220509
  Receipt Date: 20220509
  Transmission Date: 20220721
  Serious: Yes (Other)
  Sender: FDA-Public Use
  Company Number: US-Fresenius Kabi-FK202205367

PATIENT
  Age: 2 Year
  Sex: Male

DRUGS (4)
  1. LIDOCAINE [Suspect]
     Active Substance: LIDOCAINE
     Indication: Ventricular fibrillation
     Route: 042
  2. NADOLOL [Concomitant]
     Active Substance: NADOLOL
     Indication: Ventricular fibrillation
     Dosage: UNKNOWN
     Route: 065
  3. MEXILETINE [Concomitant]
     Active Substance: MEXILETINE
     Indication: Ventricular fibrillation
     Dosage: UNKNOWN
     Route: 065
  4. FLECAINIDE [Concomitant]
     Active Substance: FLECAINIDE
     Indication: Ventricular fibrillation
     Dosage: UNKNOWN
     Route: 065

REACTIONS (2)
  - Partial seizures [Recovered/Resolved]
  - Generalised tonic-clonic seizure [Recovered/Resolved]
